FAERS Safety Report 8594504-8 (Version None)
Quarter: 2012Q3

REPORT INFORMATION
  Report Type: 
  Country: None (occurrence: None)
  Receive Date: 20120725
  Receipt Date: 20120718
  Transmission Date: 20120928
  Serious: Yes (Death, Life-Threatening, Hospitalization, Other)
  Sender: FDA-Public Use
  Company Number: 2012032893

PATIENT
  Age: 67 Year
  Sex: Female

DRUGS (10)
  1. HAEMOCOMPLETTAN P (FIBRINOGEN CONCENTRATE (HUMAN)) [Suspect]
  2. FACTOR XIII (FACTOR XIII (FIBRIN STRABILISING FACTOR) [Concomitant]
  3. BERIPLEX P/N (BERIPLEX P/N) [Suspect]
     Dosage: 500 DF DOSAGE FORM, 4 SEPARATE DOSE
     Dates: start: 20120620
  4. VASOPRESSIN (VASOPRESSIN) [Concomitant]
  5. EPSILON-AMINOCAPRONASURE (AMINOCAPROIC ACID) [Concomitant]
  6. HORMONES AND RELATED AGENTS (HORMONES AND RELATED AGENTS) [Concomitant]
  7. HAEMOCOMPLETTAN P (FIBRINOGEN CONCENTRATE (HUMAN)) [Suspect]
     Indication: HAEMORRHAGE
     Dosage: 1 SEPARATE DOSE, 1 SEPARATE DOSE
  8. ERYTHROCYTE CONCENTRATE VBF (RED BLOOD CELLS, CONCENTRATED) [Suspect]
     Indication: NEUROGENIC SHOCK
     Dosage: 6 SEPARATE DOSE
  9. ERYTHROCYTE CONCENTRATE VBF (RED BLOOD CELLS, CONCENTRATED) [Suspect]
     Indication: PROCEDURAL HAEMORRHAGE
     Dosage: 6 SEPARATE DOSE
  10. ERYTHROCYTE CONCENTRATE VBF (RED BLOOD CELLS, CONCENTRATED) [Suspect]
     Indication: SHOCK
     Dosage: 6 SEPARATE DOSE

REACTIONS (3)
  - HYPERKALAEMIA [None]
  - CIRCULATORY COLLAPSE [None]
  - SHOCK [None]
